FAERS Safety Report 26011983 (Version 3)
Quarter: 2025Q4

REPORT INFORMATION
  Report Type: Spontaneous
  Country: EU (occurrence: EU)
  Receive Date: 20251107
  Receipt Date: 20251229
  Transmission Date: 20260117
  Serious: Yes (Hospitalization)
  Sender: SANOFI AVENTIS
  Company Number: EU-SA-2025SA326959

PATIENT
  Age: 45 Year
  Sex: Male
  Weight: 96.3 kg

DRUGS (3)
  1. CEREZYME [Suspect]
     Active Substance: IMIGLUCERASE
     Indication: Gaucher^s disease type I
     Dosage: 6000 U, QOW
     Route: 041
     Dates: start: 20251016, end: 20251031
  2. CEREZYME [Suspect]
     Active Substance: IMIGLUCERASE
     Dosage: 6000 U, QOW
     Route: 041
     Dates: start: 20251031, end: 20251117
  3. CEREZYME [Suspect]
     Active Substance: IMIGLUCERASE
     Dosage: 6000 U, QOW
     Route: 041
     Dates: start: 20251117

REACTIONS (4)
  - Feeling hot [Unknown]
  - Abdominal pain [Recovered/Resolved]
  - Headache [Recovering/Resolving]
  - Abdominal pain upper [Recovered/Resolved]

NARRATIVE: CASE EVENT DATE: 20251031
